FAERS Safety Report 7866302-1 (Version None)
Quarter: 2011Q4

REPORT INFORMATION
  Report Type: 
  Country: None (occurrence: None)
  Receive Date: 20111028
  Receipt Date: 20101230
  Transmission Date: 20120403
  Serious: No
  Sender: FDA-Public Use
  Company Number: US-MYLANLABS-2010S1021303

PATIENT
  Age: 74 Year
  Sex: Male
  Weight: 104.33 kg

DRUGS (6)
  1. TEMAZEPAM [Concomitant]
  2. HYDROXYZINE [Concomitant]
     Indication: PRURITUS
  3. DIAZEPAM [Suspect]
     Indication: ANXIETY
     Route: 048
     Dates: start: 20100629
  4. DIAZEPAM [Suspect]
     Indication: BACK PAIN
     Route: 048
     Dates: start: 20100629
  5. SAW PALMETTO [Concomitant]
     Indication: BENIGN PROSTATIC HYPERPLASIA
     Dates: start: 20070101
  6. FINASTERIDE [Concomitant]
     Indication: BENIGN PROSTATIC HYPERPLASIA
     Dates: start: 20070101

REACTIONS (1)
  - DIARRHOEA [None]
